FAERS Safety Report 22006017 (Version 2)
Quarter: 2023Q1

REPORT INFORMATION
  Report Type: Spontaneous
  Country: US (occurrence: US)
  Receive Date: 20230217
  Receipt Date: 20230222
  Transmission Date: 20230418
  Serious: Yes (Death, Other)
  Sender: FDA-Public Use
  Company Number: US-PFIZER INC-PV202300029266

PATIENT
  Age: 16 Year
  Sex: Male

DRUGS (4)
  1. DIPRIVAN [Suspect]
     Active Substance: PROPOFOL
     Indication: Craniocerebral injury
     Dosage: 1.66 MG/KG/HOUR
  2. DIPRIVAN [Suspect]
     Active Substance: PROPOFOL
     Dosage: 8.33 MG/KG
  3. DIPRIVAN [Suspect]
     Active Substance: PROPOFOL
     Dosage: 6.7 AND 8.33 MG/KG PER HOUR AND WAS CONTINUED FOR 35 HOURS
  4. DIPRIVAN [Suspect]
     Active Substance: PROPOFOL
     Dosage: DECREASED HIS DOSAGE OF PROPOFOL TO 1.66 MG/KG

REACTIONS (10)
  - Arrhythmia [Fatal]
  - Circulatory collapse [Fatal]
  - Propofol infusion syndrome [Fatal]
  - Cardiac arrest [Unknown]
  - Rhabdomyolysis [Unknown]
  - Acute kidney injury [Unknown]
  - Tachycardia [Unknown]
  - Metabolic acidosis [Unknown]
  - Electrocardiogram QRS complex prolonged [Unknown]
  - Bradycardia [Unknown]
